APPROVED DRUG PRODUCT: EFAVIRENZ, EMTRICITABINE, AND TENOFOVIR DISOPROXIL FUMARATE
Active Ingredient: EFAVIRENZ; EMTRICITABINE; TENOFOVIR DISOPROXIL FUMARATE
Strength: 600MG;200MG;300MG
Dosage Form/Route: TABLET;ORAL
Application: A203041 | Product #001 | TE Code: AB
Applicant: AUROBINDO PHARMA LTD
Approved: Sep 4, 2018 | RLD: No | RS: Yes | Type: RX